FAERS Safety Report 5768236-5 (Version None)
Quarter: 2008Q2

REPORT INFORMATION
  Report Type: 
  Country: None (occurrence: None)
  Receive Date: 20080612
  Receipt Date: 20080501
  Transmission Date: 20081010
  Serious: No
  Sender: FDA-Public Use
  Company Number: US-ABBOTT-06P-163-0341577-00

PATIENT
  Sex: Male
  Weight: 61.744 kg

DRUGS (8)
  1. HUMIRA [Suspect]
     Indication: RHEUMATOID ARTHRITIS
     Route: 058
     Dates: start: 20051101, end: 20060101
  2. TRIAZOLAM [Concomitant]
     Indication: VERTIGO
  3. OXYCODONE HCL [Concomitant]
     Indication: PAIN
  4. MORPHINE [Concomitant]
     Indication: DRUG USE FOR UNKNOWN INDICATION
     Route: 048
     Dates: start: 20070101
  5. ERGOCALCIFEROL [Concomitant]
     Indication: DRUG USE FOR UNKNOWN INDICATION
     Route: 048
  6. CALCIUM-SANDOZ [Concomitant]
     Indication: DRUG USE FOR UNKNOWN INDICATION
     Route: 048
  7. ANTIHYPERTENSIVES [Concomitant]
     Indication: BLOOD PRESSURE INCREASED
     Route: 048
  8. ANTIHYPERTENSIVES [Concomitant]
     Indication: AORTIC ANEURYSM

REACTIONS (6)
  - BACK PAIN [None]
  - DIZZINESS [None]
  - DRUG INEFFECTIVE [None]
  - GENERAL PHYSICAL HEALTH DETERIORATION [None]
  - NECK PAIN [None]
  - VERTIGO [None]
